FAERS Safety Report 9442414 (Version 1)
Quarter: 2013Q3

REPORT INFORMATION
  Report Type: Spontaneous
  Country: US (occurrence: US)
  Receive Date: 20130806
  Receipt Date: 20130806
  Transmission Date: 20140515
  Serious: No
  Sender: FDA-Public Use
  Company Number: US-GLAXOSMITHKLINE-A1022673A

PATIENT
  Age: 53 Year
  Sex: Female

DRUGS (4)
  1. ADVAIR [Suspect]
     Indication: CHRONIC OBSTRUCTIVE PULMONARY DISEASE
     Dosage: 1PUFF TWICE PER DAY
     Route: 055
     Dates: end: 201212
  2. SPIRIVA [Concomitant]
  3. ALBUTEROL [Concomitant]
  4. PRO-AIR [Concomitant]

REACTIONS (3)
  - Glassy eyes [Recovered/Resolved]
  - Vision blurred [Unknown]
  - Visual impairment [Unknown]
